FAERS Safety Report 7337319-0 (Version None)
Quarter: 2011Q1

REPORT INFORMATION
  Report Type: 
  Country: None (occurrence: None)
  Receive Date: 20110224
  Receipt Date: 20110214
  Transmission Date: 20110831
  Serious: Yes (Hospitalization, Other)
  Sender: FDA-Public Use
  Company Number: TRP_06848_2010

PATIENT
  Sex: Female
  Weight: 63 kg

DRUGS (7)
  1. INFERGEN [Suspect]
     Indication: HEPATITIS C
     Dosage: (15 UG SUBCUTANEOUS)
     Route: 058
     Dates: start: 20100301, end: 20100311
  2. FIORICET [Concomitant]
  3. RIBAVIRIN [Suspect]
     Indication: HEPATITIS C
     Dosage: (600 MG BID, [DISCREPANT; 600 MG QAM AND 400 MG QPM  PER HOSPITALIST] ORAL), ; (DF)
     Route: 048
     Dates: start: 20100301, end: 20100311
  4. REQUIP [Concomitant]
  5. MENEST [Concomitant]
  6. PREMARIN [Concomitant]
  7. TOPROL-XL [Concomitant]

REACTIONS (17)
  - PYREXIA [None]
  - NAUSEA [None]
  - PRURITUS [None]
  - VOMITING [None]
  - LEUKOPENIA [None]
  - RED BLOOD CELL COUNT DECREASED [None]
  - MIGRAINE [None]
  - PCO2 DECREASED [None]
  - DRUG HYPERSENSITIVITY [None]
  - RASH [None]
  - BLOOD PRESSURE INCREASED [None]
  - THYROXINE DECREASED [None]
  - CHILLS [None]
  - DIZZINESS POSTURAL [None]
  - PLATELET COUNT DECREASED [None]
  - DYSPNOEA [None]
  - BLOOD PH INCREASED [None]
